FAERS Safety Report 5393354-3 (Version None)
Quarter: 2007Q3

REPORT INFORMATION
  Report Type: 
  Country: None (occurrence: None)
  Receive Date: 20070723
  Receipt Date: 20070713
  Transmission Date: 20080115
  Serious: Yes (Other)
  Sender: FDA-Public Use
  Company Number: PHMT2007CA01571

PATIENT
  Age: 50 Year
  Sex: Female

DRUGS (6)
  1. ZELNORM [Suspect]
     Indication: IRRITABLE BOWEL SYNDROME
     Dosage: 6 MG, UNK
     Route: 048
     Dates: start: 20040101
  2. ZELNORM [Suspect]
     Dosage: UNK, UNK
     Route: 048
  3. ZELNORM [Suspect]
  4. ZELNORM [Suspect]
     Dosage: UNK, UNK
  5. SEX HORMONES AND MODULATORS OF THE GENI. SYS. [Concomitant]
     Dosage: UNK, UNK
  6. CHOLESTEROL- AND TRIGLYCERIDE REDUCERS [Concomitant]
     Dosage: UNK, UNK

REACTIONS (4)
  - CEREBROVASCULAR ACCIDENT [None]
  - DISTURBANCE IN ATTENTION [None]
  - FATIGUE [None]
  - MEMORY IMPAIRMENT [None]
